FAERS Safety Report 8482264-0 (Version None)
Quarter: 2012Q3

REPORT INFORMATION
  Report Type: 
  Country: None (occurrence: None)
  Receive Date: 20120702
  Receipt Date: 20120622
  Transmission Date: 20120928
  Serious: Yes (Other)
  Sender: FDA-Public Use
  Company Number: PHHY2012JP054578

PATIENT
  Age: 62 Year
  Sex: Male

DRUGS (3)
  1. DIOVAN [Suspect]
     Dosage: 80 MG, DAILY
     Route: 048
  2. DIOVAN [Suspect]
     Dosage: 80 MG, DAILY
     Route: 048
  3. DIOVAN HCT [Suspect]
     Route: 048
     Dates: start: 20111201

REACTIONS (3)
  - SUDDEN HEARING LOSS [None]
  - TINNITUS [None]
  - EUSTACHIAN TUBE STENOSIS [None]
